FAERS Safety Report 15231345 (Version 2)
Quarter: 2018Q4

REPORT INFORMATION
  Report Type: Spontaneous
  Country: FR (occurrence: FR)
  Receive Date: 20180802
  Receipt Date: 20180802
  Transmission Date: 20190204
  Serious: Yes (Hospitalization)
  Sender: FDA-Public Use
  Company Number: PHHY2018FR060847

PATIENT
  Age: 47 Year
  Sex: Male
  Weight: 75 kg

DRUGS (5)
  1. PIRILENE [Suspect]
     Active Substance: PYRAZINAMIDE
     Indication: PULMONARY TUBERCULOSIS
     Dosage: 1.5 G, QD
     Route: 048
     Dates: start: 20180507
  2. MINOCYCLINE [Suspect]
     Active Substance: MINOCYCLINE\MINOCYCLINE HYDROCHLORIDE
     Indication: PULMONARY TUBERCULOSIS
     Dosage: 200 MG, QD
     Route: 048
     Dates: start: 20180507
  3. DEXAMBUTOL [Suspect]
     Active Substance: ETHAMBUTOL HYDROCHLORIDE
     Indication: PULMONARY TUBERCULOSIS
     Dosage: 1.5 G, QD
     Route: 048
     Dates: start: 20180507, end: 20180518
  4. ADIAZIN [Suspect]
     Active Substance: SULFADIAZINE
     Indication: PULMONARY TUBERCULOSIS
     Dosage: 16 DF, QD
     Route: 048
     Dates: start: 20180507
  5. LAMPRENE [Suspect]
     Active Substance: CLOFAZIMINE
     Indication: PULMONARY TUBERCULOSIS
     Dosage: 1 DF, QD
     Route: 048
     Dates: start: 20180507

REACTIONS (2)
  - Neutropenia [Recovering/Resolving]
  - Condition aggravated [Recovering/Resolving]

NARRATIVE: CASE EVENT DATE: 20180517
